FAERS Safety Report 7931987-8 (Version None)
Quarter: 2011Q4

REPORT INFORMATION
  Report Type: 
  Country: None (occurrence: None)
  Receive Date: 20111121
  Receipt Date: 20110812
  Transmission Date: 20120403
  Serious: No
  Sender: FDA-Public Use
  Company Number: US-BAYER-2011-075693

PATIENT
  Age: 42 Year
  Sex: Female
  Weight: 73 kg

DRUGS (3)
  1. ALEVE-D SINUS + COLD [Suspect]
     Indication: SINUS CONGESTION
     Route: 048
  2. CHOLESTEROL- AND TRIGLYCERIDE REDUCERS [Concomitant]
  3. SYNTHROID [Concomitant]

REACTIONS (1)
  - NO ADVERSE EVENT [None]
